FAERS Safety Report 8572904 (Version 2)
Quarter: 2013Q1

REPORT INFORMATION
  Report Type: Spontaneous
  Country: US (occurrence: None)
  Receive Date: 20120514
  Receipt Date: 20130326
  Transmission Date: 20140127
  Serious: Yes (Other)
  Sender: FDA-Public Use
  Company Number: US-1192031

PATIENT
  Age: 58 Year
  Sex: Male

DRUGS (2)
  1. VIGAMOX [Suspect]
     Dosage: POSTOPERATIVE + AT THE TIME OF ENDOPHTHALMITIS: ONCE A DAY OPHTHALMIC)
     Route: 047
  2. PREDNISOLONE ACETATE [Concomitant]

REACTIONS (7)
  - PHOTOPHOBIA [None]
  - CONJUNCTIVAL HYPERAEMIA [None]
  - COMPLICATIONS OF TRANSPLANT SURGERY [None]
  - Staphylococcus test positive [None]
  - ENDOPHTHALMITIS [None]
  - VISUAL ACUITY REDUCED [None]
  - VITRITIS [None]
